FAERS Safety Report 10700453 (Version 1)
Quarter: 2015Q1

REPORT INFORMATION
  Report Type: Spontaneous
  Country: CA (occurrence: None)
  Receive Date: 20150107
  Receipt Date: 20150107
  Transmission Date: 20150721
  Serious: Yes (Hospitalization)
  Sender: FDA-Public Use
  Company Number: FK201406555

PATIENT
  Age: 49 Year
  Sex: Female

DRUGS (2)
  1. CISPLATIN. [Concomitant]
     Active Substance: CISPLATIN
  2. FLUOROURACIL. [Suspect]
     Active Substance: FLUOROURACIL
     Indication: BLADDER TRANSITIONAL CELL CARCINOMA
     Dosage: 1000 MG/M2, FOR 4 DAYS, INFUSIONAL

REACTIONS (13)
  - Chest pain [None]
  - Nausea [None]
  - Pleural effusion [None]
  - Tachycardia [None]
  - Hypovolaemia [None]
  - Renal impairment [None]
  - Respiratory failure [None]
  - Cardiogenic shock [None]
  - Hypoxia [None]
  - Vomiting [None]
  - Respiratory distress [None]
  - Electrocardiogram ST segment depression [None]
  - Haemodialysis [None]
